FAERS Safety Report 17536248 (Version 1)
Quarter: 2020Q1

REPORT INFORMATION
  Report Type: Report from Study
  Country: None (occurrence: TW)
  Receive Date: 20200313
  Receipt Date: 20200313
  Transmission Date: 20200409
  Serious: Yes (Other)
  Sender: FDA-Public Use
  Company Number: TW-ABBVIE-20K-153-3317910-00

PATIENT
  Age: 72 Year
  Sex: Male

DRUGS (5)
  1. DIPHENIDOL [Concomitant]
     Active Substance: DIPHENIDOL
     Indication: DIZZINESS
     Route: 048
     Dates: start: 20190715
  2. MECLIZINE [Concomitant]
     Active Substance: MECLIZINE HYDROCHLORIDE
     Indication: DIZZINESS
     Route: 048
     Dates: start: 20190617
  3. TOPSYM [Concomitant]
     Indication: URTICARIA
     Dates: start: 20190617
  4. IMBRUVICA [Suspect]
     Active Substance: IBRUTINIB
     Indication: MANTLE CELL LYMPHOMA RECURRENT
     Route: 048
     Dates: start: 20180507
  5. BEFON [Concomitant]
     Indication: GOUT
     Route: 048
     Dates: start: 20190617

REACTIONS (12)
  - Hepatic cyst [Not Recovered/Not Resolved]
  - Sinus tachycardia [Not Recovered/Not Resolved]
  - Gout [Not Recovered/Not Resolved]
  - Paronychia [Not Recovered/Not Resolved]
  - Pruritus [Not Recovered/Not Resolved]
  - Muscle spasms [Not Recovered/Not Resolved]
  - Renal cyst [Not Recovered/Not Resolved]
  - Folliculitis [Not Recovered/Not Resolved]
  - Rash [Not Recovered/Not Resolved]
  - Emphysema [Not Recovered/Not Resolved]
  - Ischaemia [Not Recovered/Not Resolved]
  - Nephrolithiasis [Not Recovered/Not Resolved]

NARRATIVE: CASE EVENT DATE: 20190828
